FAERS Safety Report 23290588 (Version 3)
Quarter: 2024Q1

REPORT INFORMATION
  Report Type: Report from Study
  Country: US (occurrence: US)
  Receive Date: 20231213
  Receipt Date: 20240108
  Transmission Date: 20240409
  Serious: Yes (Other)
  Sender: FDA-Public Use
  Company Number: US-UCBSA-2023058326

PATIENT
  Age: 70 Year
  Sex: Female

DRUGS (2)
  1. BIMEKIZUMAB [Suspect]
     Active Substance: BIMEKIZUMAB
     Indication: Psoriasis
     Dosage: 320 MILLIGRAM, EV 4 WEEKS
     Route: 058
     Dates: start: 20231207
  2. OTEZLA [Concomitant]
     Active Substance: APREMILAST
     Indication: Psoriasis
     Dosage: UNK

REACTIONS (7)
  - Immunodeficiency [Recovered/Resolved]
  - Pneumonia [Not Recovered/Not Resolved]
  - Behaviour disorder [Recovered/Resolved]
  - Psoriasis [Not Recovered/Not Resolved]
  - Gait disturbance [Not Recovered/Not Resolved]
  - Arthralgia [Recovered/Resolved]
  - Nasopharyngitis [Not Recovered/Not Resolved]

NARRATIVE: CASE EVENT DATE: 20231208
